FAERS Safety Report 12772786 (Version 3)
Quarter: 2016Q4

REPORT INFORMATION
  Report Type: Report from Study
  Country: US (occurrence: US)
  Receive Date: 20160922
  Receipt Date: 20161005
  Transmission Date: 20170207
  Serious: Yes (Hospitalization)
  Sender: FDA-Public Use
  Company Number: US-GILEAD-2016-0230121

PATIENT
  Age: 60 Year
  Sex: Female

DRUGS (1)
  1. SOFOSBUVIR [Suspect]
     Active Substance: SOFOSBUVIR
     Indication: HEPATITIS C
     Dosage: 400 MG, UNK
     Route: 048
     Dates: start: 20160818

REACTIONS (6)
  - Drug withdrawal syndrome [Unknown]
  - Myalgia [Not Recovered/Not Resolved]
  - Diarrhoea [Unknown]
  - Bone pain [Not Recovered/Not Resolved]
  - Irritability [Unknown]
  - Fatigue [Recovering/Resolving]

NARRATIVE: CASE EVENT DATE: 2016
